FAERS Safety Report 24696672 (Version 2)
Quarter: 2024Q4

REPORT INFORMATION
  Report Type: Spontaneous
  Country: US (occurrence: US)
  Receive Date: 20241204
  Receipt Date: 20241218
  Transmission Date: 20250114
  Serious: No
  Sender: ALEXION PHARMACEUTICALS
  Company Number: US-AstraZeneca-CH-00754225A

PATIENT

DRUGS (4)
  1. STRENSIQ [Suspect]
     Active Substance: ASFOTASE ALFA
     Indication: Hypophosphatasia
     Dosage: 2 MILLIGRAM/KILOGRAM, PRN
  2. STRENSIQ [Suspect]
     Active Substance: ASFOTASE ALFA
     Dosage: 2 MILLIGRAM/KILOGRAM, PRN
     Route: 058
  3. STRENSIQ [Suspect]
     Active Substance: ASFOTASE ALFA
     Dosage: 2 MILLIGRAM/KILOGRAM, PRN
  4. STRENSIQ [Suspect]
     Active Substance: ASFOTASE ALFA
     Dosage: 2 MILLIGRAM/KILOGRAM, PRN
     Route: 058

REACTIONS (4)
  - Paraesthesia oral [Unknown]
  - Panic attack [Unknown]
  - Anxiety [Unknown]
  - Injection site reaction [Unknown]
